FAERS Safety Report 20119834 (Version 2)
Quarter: 2021Q4

REPORT INFORMATION
  Report Type: Report from Study
  Country: CN (occurrence: CN)
  Receive Date: 20211126
  Receipt Date: 20211211
  Transmission Date: 20220303
  Serious: Yes (Death, Hospitalization)
  Sender: FDA-Public Use
  Company Number: CN-NOVARTISPH-NVSC2021CN257535

PATIENT
  Age: 38 Year
  Sex: Female
  Weight: 69 kg

DRUGS (8)
  1. TYKERB [Suspect]
     Active Substance: LAPATINIB DITOSYLATE
     Indication: Breast cancer
     Dosage: 5 DF, QD (250 MG/ TABLET)
     Route: 048
     Dates: start: 20210827, end: 20210928
  2. CAPECITABINE [Suspect]
     Active Substance: CAPECITABINE
     Indication: Breast cancer
     Dosage: UNK UNK, BID (3 TABLETS IN THE MORNING, 4 TABLETS IN THE EVENING)
     Route: 048
     Dates: start: 20210827, end: 20210929
  3. POTASSIUM CHLORIDE [Concomitant]
     Active Substance: POTASSIUM CHLORIDE
     Indication: Mineral supplementation
     Dosage: UNK
     Route: 065
  4. HYDROTALCITE [Concomitant]
     Active Substance: HYDROTALCITE
     Indication: Mineral supplementation
     Route: 065
  5. OXYCODONE [Concomitant]
     Active Substance: OXYCODONE
     Indication: Pain
     Dosage: UNK
     Route: 065
  6. MEPERIDINE [Concomitant]
     Active Substance: MEPERIDINE
     Indication: Pain
     Dosage: UNK
     Route: 065
  7. TRAMADOL [Concomitant]
     Active Substance: TRAMADOL
     Indication: Pain
     Dosage: UNK
     Route: 065
  8. PHLOROGLUCINOL [Concomitant]
     Active Substance: PHLOROGLUCINOL
     Indication: Muscle spasms
     Dosage: UNK
     Route: 065

REACTIONS (10)
  - Cholecystitis [Fatal]
  - Abdominal pain [Fatal]
  - Abdominal distension [Fatal]
  - Decreased appetite [Fatal]
  - Asthenia [Fatal]
  - Skin discolouration [Fatal]
  - Scleral discolouration [Fatal]
  - Jaundice cholestatic [Fatal]
  - Breast cancer [Fatal]
  - Malignant neoplasm progression [Fatal]

NARRATIVE: CASE EVENT DATE: 20210924
